FAERS Safety Report 10055262 (Version 1)
Quarter: 2014Q2

REPORT INFORMATION
  Report Type: Spontaneous
  Country: US (occurrence: US)
  Receive Date: 20140403
  Receipt Date: 20140403
  Transmission Date: 20141212
  Serious: No
  Sender: FDA-Public Use
  Company Number: US-009507513-1403USA010890

PATIENT
  Age: 76 Year
  Sex: Male

DRUGS (1)
  1. DULERA [Suspect]
     Dosage: 100/5MCG, 2 PUFFS IN THE EVENING AND 2 PUFFS IN THE MORNING
     Route: 055
     Dates: start: 2008

REACTIONS (4)
  - Dyspnoea [Unknown]
  - Product container issue [Unknown]
  - Product colour issue [Unknown]
  - Underdose [Unknown]
